FAERS Safety Report 19403385 (Version 3)
Quarter: 2022Q1

REPORT INFORMATION
  Report Type: Spontaneous
  Country: US (occurrence: US)
  Receive Date: 20210611
  Receipt Date: 20220210
  Transmission Date: 20220424
  Serious: Yes (Life-Threatening, Other)
  Sender: FDA-Public Use
  Company Number: US-PFIZER INC-2021634783

PATIENT
  Age: 68 Year
  Sex: Female

DRUGS (1)
  1. HEPARIN SODIUM [Suspect]
     Active Substance: HEPARIN SODIUM
     Indication: Thrombosis
     Dosage: UNK (INFUSION)

REACTIONS (3)
  - Heparin-induced thrombocytopenia [Unknown]
  - Haemorrhage [Unknown]
  - International normalised ratio increased [Unknown]
